FAERS Safety Report 6818726-9 (Version None)
Quarter: 2010Q2

REPORT INFORMATION
  Report Type: 
  Country: None (occurrence: None)
  Receive Date: 20100630
  Receipt Date: 20100618
  Transmission Date: 20101027
  Serious: Yes (Death, Hospitalization)
  Sender: FDA-Public Use
  Company Number: 2010MA000158

PATIENT
  Age: 68 Year
  Sex: Female

DRUGS (15)
  1. METFORMIN HCL [Suspect]
     Indication: TYPE 2 DIABETES MELLITUS
     Dosage: 1 G; QD; PO
     Route: 048
     Dates: start: 20090616, end: 20091229
  2. LACTULOS MEDA (CON.) [Concomitant]
  3. INSULATARD (CON.) [Concomitant]
  4. ENALAPRIL (CON.) [Concomitant]
  5. OMEPRAZOLE (CON.) [Concomitant]
  6. SIMVASTATIN (CON.) [Concomitant]
  7. ONDANSETRON (CON.) [Concomitant]
  8. LAXOBERAL (CON.) [Concomitant]
  9. DOLCONTIN (CON.) [Concomitant]
  10. SELOKEN (CON.) [Concomitant]
  11. NORVASC (CON.) [Concomitant]
  12. NATRIUMKLORID (CON.) [Concomitant]
  13. TROMBYL (CON.) [Concomitant]
  14. IMOVANE (CON.) [Concomitant]
  15. HUMALOG (CON.) [Concomitant]

REACTIONS (4)
  - CARDIAC ARREST [None]
  - LACTIC ACIDOSIS [None]
  - UNEVALUABLE EVENT [None]
  - WHEEZING [None]
